FAERS Safety Report 25173785 (Version 1)
Quarter: 2025Q2

REPORT INFORMATION
  Report Type: Spontaneous
  Country: IN (occurrence: IN)
  Receive Date: 20250408
  Receipt Date: 20250408
  Transmission Date: 20250717
  Serious: Yes (Life-Threatening, Hospitalization)
  Sender: MYLAN
  Company Number: IN-MYLANLABS-2025M1029604

PATIENT
  Age: 69 Year
  Sex: Female

DRUGS (8)
  1. HEPARIN [Suspect]
     Active Substance: HEPARIN SODIUM
     Indication: Anticoagulant therapy
  2. HEPARIN [Suspect]
     Active Substance: HEPARIN SODIUM
     Route: 058
  3. HEPARIN [Suspect]
     Active Substance: HEPARIN SODIUM
     Route: 058
  4. HEPARIN [Suspect]
     Active Substance: HEPARIN SODIUM
  5. BIVALIRUDIN [Suspect]
     Active Substance: BIVALIRUDIN
     Indication: Heparin-induced thrombocytopenia
  6. BIVALIRUDIN [Suspect]
     Active Substance: BIVALIRUDIN
     Route: 065
  7. BIVALIRUDIN [Suspect]
     Active Substance: BIVALIRUDIN
     Route: 065
  8. BIVALIRUDIN [Suspect]
     Active Substance: BIVALIRUDIN

REACTIONS (2)
  - Heparin-induced thrombocytopenia [Unknown]
  - Drug ineffective [Unknown]
